FAERS Safety Report 7100006-8 (Version None)
Quarter: 2010Q4

REPORT INFORMATION
  Report Type: 
  Country: None (occurrence: None)
  Receive Date: 20101112
  Receipt Date: 20100903
  Transmission Date: 20110411
  Serious: No
  Sender: FDA-Public Use
  Company Number: US-BAYER-201033040NA

PATIENT
  Age: 66 Year
  Sex: Male
  Weight: 67 kg

DRUGS (3)
  1. ULTRAVIST 370 [Suspect]
     Indication: COMPUTERISED TOMOGRAM THORAX
     Dosage: TOTAL DAILY DOSE: 80 ML  UNIT DOSE: 500 ML
     Route: 042
     Dates: start: 20101003, end: 20101003
  2. BARIUM [Concomitant]
     Indication: COMPUTERISED TOMOGRAM THORAX
     Route: 048
     Dates: start: 20100903, end: 20100903
  3. BARIUM [Concomitant]
     Route: 048
     Dates: start: 20100903, end: 20100903

REACTIONS (2)
  - PRURITUS [None]
  - URTICARIA [None]
